FAERS Safety Report 6297481-8 (Version None)
Quarter: 2009Q3

REPORT INFORMATION
  Report Type: 
  Country: None (occurrence: None)
  Receive Date: 20090805
  Receipt Date: 20090728
  Transmission Date: 20100115
  Serious: Yes (Other)
  Sender: FDA-Public Use
  Company Number: US-AMGEN-QUU353699

PATIENT
  Sex: Male
  Weight: 94 kg

DRUGS (1)
  1. ENBREL [Suspect]
     Indication: PSORIASIS
     Route: 058
     Dates: start: 20020201, end: 20090501

REACTIONS (4)
  - DEMYELINATION [None]
  - HEADACHE [None]
  - NASAL DISORDER [None]
  - RHINORRHOEA [None]
